FAERS Safety Report 7656025-6 (Version None)
Quarter: 2011Q3

REPORT INFORMATION
  Report Type: 
  Country: None (occurrence: None)
  Receive Date: 20110804
  Receipt Date: 20110725
  Transmission Date: 20111222
  Serious: Yes (Other)
  Sender: FDA-Public Use
  Company Number: CA-JNJFOC-2010028406

PATIENT
  Sex: Female
  Weight: 63.5 kg

DRUGS (3)
  1. ULTRA STRENGTH ROLAIDS SOFTCHEW VANILLA [Suspect]
     Indication: MINERAL SUPPLEMENTATION
     Dosage: DAILY DOSE TEXT: 1 TABLET AS NEEDED
     Route: 048
  2. FOLIC ACID [Concomitant]
     Indication: PRODUCT USED FOR UNKNOWN INDICATION
     Dosage: DAILY DOSE TEXT: 100MG UNSPECIFIED
     Route: 048
  3. ULTRA STRENGTH ROLAIDS SOFTCHEW VANILLA [Suspect]
     Indication: DYSPEPSIA
     Dosage: DAILY DOSE TEXT: 1 TABLET AS NEEDED
     Route: 048

REACTIONS (8)
  - PLACENTAL DISORDER [None]
  - SMALL FOR DATES BABY [None]
  - OLIGOHYDRAMNIOS [None]
  - MATERNAL EXPOSURE DURING PREGNANCY [None]
  - PRODUCT QUALITY ISSUE [None]
  - PLACENTAL INFARCTION [None]
  - PREMATURE LABOUR [None]
  - UMBILICAL CORD COMPRESSION [None]
